FAERS Safety Report 9849881 (Version 1)
Quarter: 2014Q1

REPORT INFORMATION
  Report Type: Spontaneous
  Country: US (occurrence: None)
  Receive Date: 20140124
  Receipt Date: 20140124
  Transmission Date: 20141002
  Serious: Yes (Disabling, Other)
  Sender: FDA-Public Use
  Company Number: None

PATIENT
  Age: 4 Year
  Sex: Male
  Weight: 16.33 kg

DRUGS (1)
  1. SINGULAIR [Suspect]
     Indication: RESPIRATORY TRACT INFECTION
     Dosage: 1  1X DAILY BEFORE  ED  ONCE DAILY  TAKEN BY MOUTH
     Route: 048
     Dates: end: 20140122

REACTIONS (5)
  - Mental disorder [None]
  - Irritability [None]
  - Aggression [None]
  - Aggression [None]
  - Hallucination [None]
